FAERS Safety Report 7602940-9 (Version None)
Quarter: 2011Q3

REPORT INFORMATION
  Report Type: 
  Country: None (occurrence: None)
  Receive Date: 20110711
  Receipt Date: 20110711
  Transmission Date: 20111222
  Serious: Yes (Other)
  Sender: FDA-Public Use
  Company Number: None

PATIENT
  Age: 73 Year
  Sex: Female
  Weight: 81.6475 kg

DRUGS (2)
  1. VANCOMYCIN [Suspect]
     Indication: STAPHYLOCOCCAL OSTEOMYELITIS
     Dosage: 1000 MG EVERY 48 HRS IV DRIP
     Route: 041
     Dates: start: 20110530, end: 20110608
  2. ZICONOTIDE [Suspect]
     Indication: PAIN
     Dosage: CONTINUOUS IT
     Route: 037
     Dates: start: 20100701, end: 20100706

REACTIONS (3)
  - ACUTE PSYCHOSIS [None]
  - PYREXIA [None]
  - HYPOXIA [None]
